FAERS Safety Report 21948724 (Version 1)
Quarter: 2023Q1

REPORT INFORMATION
  Report Type: Spontaneous
  Country: NL (occurrence: NL)
  Receive Date: 20230203
  Receipt Date: 20230203
  Transmission Date: 20230418
  Serious: Yes (Hospitalization)
  Sender: FDA-Public Use
  Company Number: None

PATIENT
  Sex: Female
  Weight: 75 kg

DRUGS (3)
  1. OXYCODONE HYDROCHLORIDE [Suspect]
     Active Substance: OXYCODONE HYDROCHLORIDE
     Indication: Procedural pain
     Dosage: 1 X PER DAY IF NECESSARY, OXYCODONE CAPSULE 5MG / OXYNORM CAPSULE 5MGOXYNORM CAPSULE 5MGOXYCODONE CA
     Dates: start: 20221212
  2. BISOPROLOL [Suspect]
     Active Substance: BISOPROLOL
     Indication: Atrial fibrillation
     Dosage: 10 MILLIGRAM DAILY; BRAND NAME NOT SPECIFIED, 2 X PER DAY 2 PIECES
     Dates: start: 20200501
  3. ACETAMINOPHEN [Concomitant]
     Active Substance: ACETAMINOPHEN
     Indication: Product used for unknown indication
     Dosage: 500 MG (MILLIGRAM), STRENGTH : 500MG / BRAND NAME NOT SPECIFIED, THERAPY START DATE : ASKU , THERAP

REACTIONS (6)
  - Presyncope [Recovering/Resolving]
  - Retching [Recovering/Resolving]
  - Dizziness [Recovering/Resolving]
  - Nausea [Recovering/Resolving]
  - Blood pressure fluctuation [Recovering/Resolving]
  - Heart rate irregular [Recovering/Resolving]
